FAERS Safety Report 4431579-1 (Version None)
Quarter: 2004Q3

REPORT INFORMATION
  Report Type: 
  Country: None (occurrence: None)
  Receive Date: 20040726
  Receipt Date: 20040319
  Transmission Date: 20050211
  Serious: No
  Sender: FDA-Public Use
  Company Number: USA040258584

PATIENT
  Age: 77 Year
  Sex: Male
  Weight: 68 kg

DRUGS (4)
  1. FORTEO [Suspect]
     Dosage: 20 UG DAY
     Dates: start: 20040122, end: 20040201
  2. CALCIUM [Concomitant]
  3. VITAMIN D [Concomitant]
  4. FOSAMAX [Concomitant]

REACTIONS (3)
  - BACK PAIN [None]
  - MYALGIA [None]
  - PAIN [None]
